FAERS Safety Report 7445582-0 (Version None)
Quarter: 2011Q2

REPORT INFORMATION
  Report Type: 
  Country: None (occurrence: None)
  Receive Date: 20110429
  Receipt Date: 20110426
  Transmission Date: 20111010
  Serious: Yes (Hospitalization)
  Sender: FDA-Public Use
  Company Number: FR-ROCHE-749601

PATIENT
  Weight: 61 kg

DRUGS (3)
  1. NO DRUG/PRE-RANDOMISATION [Suspect]
     Route: 065
  2. CAELYX [Suspect]
     Indication: OVARIAN CANCER
     Dosage: LAST DOSE PRIOR TO SAE : 01 DECEMBER 2010
     Route: 065
     Dates: start: 20100615
  3. BEVACIZUMAB [Suspect]
     Indication: OVARIAN CANCER
     Dosage: FORM, FREQUENCY: UNKNOWN, TEMPORARILY INTERRUPTED
     Route: 042
     Dates: start: 20101201, end: 20101201

REACTIONS (1)
  - INTESTINAL OBSTRUCTION [None]
